FAERS Safety Report 5051374-2 (Version None)
Quarter: 2006Q3

REPORT INFORMATION
  Report Type: 
  Country: None (occurrence: None)
  Receive Date: 20060710
  Receipt Date: 20060629
  Transmission Date: 20061208
  Serious: Yes (Hospitalization)
  Sender: FDA-Public Use
  Company Number: 2006RL000244

PATIENT
  Age: 46 Year
  Sex: Male
  Weight: 126.1 kg

DRUGS (5)
  1. OMACOR [Suspect]
     Dosage: SEE IMAGE
     Route: 048
     Dates: start: 20060601, end: 20060625
  2. OMACOR [Suspect]
     Dosage: SEE IMAGE
     Route: 048
     Dates: start: 20060626, end: 20060628
  3. SPIRIVA [Concomitant]
  4. CLARITIN-D [Concomitant]
  5. NICOTINE [Concomitant]

REACTIONS (5)
  - CHEST PAIN [None]
  - DIZZINESS [None]
  - DRUG HYPERSENSITIVITY [None]
  - HYPERHIDROSIS [None]
  - VOMITING [None]
